FAERS Safety Report 23572797 (Version 1)
Quarter: 2024Q1

REPORT INFORMATION
  Report Type: Spontaneous
  Country: US (occurrence: US)
  Receive Date: 20240227
  Receipt Date: 20240227
  Transmission Date: 20240410
  Serious: No
  Sender: FDA-Public Use
  Company Number: US-PRIMUS-2024-US-005801

PATIENT
  Age: 59 Year
  Sex: Female

DRUGS (1)
  1. SERNIVO [Suspect]
     Active Substance: BETAMETHASONE DIPROPIONATE
     Indication: Off label use
     Dosage: APPLY TOPICALLY TO THE AFFECTED AREA(S) OF RASH TWICE A DAY
     Route: 061

REACTIONS (1)
  - Hypersensitivity [Unknown]
